FAERS Safety Report 10206782 (Version 1)
Quarter: 2014Q2

REPORT INFORMATION
  Report Type: Spontaneous
  Country: AR (occurrence: AR)
  Receive Date: 20140530
  Receipt Date: 20140530
  Transmission Date: 20141212
  Serious: Yes (Other)
  Sender: FDA-Public Use
  Company Number: AR-PFIZER INC-2014147837

PATIENT
  Age: 62 Year
  Sex: Female

DRUGS (3)
  1. SUTENT [Suspect]
     Indication: METASTATIC RENAL CELL CARCINOMA
     Dosage: 50 MG, UNK
     Dates: start: 20110812
  2. ATENOLOL [Concomitant]
     Indication: HYPERTENSION
  3. VALSARTAN [Concomitant]
     Indication: HYPERCHOLESTEROLAEMIA

REACTIONS (5)
  - Necrosis [Unknown]
  - Hypertension [Unknown]
  - Mucosal inflammation [Unknown]
  - Dermatitis acneiform [Unknown]
  - Asthenia [Unknown]
